FAERS Safety Report 5918068-X (Version None)
Quarter: 2008Q4

REPORT INFORMATION
  Report Type: 
  Country: None (occurrence: None)
  Receive Date: 20081014
  Receipt Date: 20081006
  Transmission Date: 20090506
  Serious: Yes (Life-Threatening, Other)
  Sender: FDA-Public Use
  Company Number: JP-ASTRAZENECA-2008AP07794

PATIENT
  Age: 57 Year
  Sex: Female

DRUGS (4)
  1. XYLOCAINE [Suspect]
     Indication: LOCAL ANAESTHESIA
     Route: 049
     Dates: start: 20081002, end: 20081002
  2. XYLOCAINE [Suspect]
     Indication: LOCAL ANAESTHESIA
     Dosage: DOSE UNKNOWN
     Route: 049
     Dates: start: 20081002, end: 20081002
  3. MAGMITT [Concomitant]
     Route: 048
     Dates: start: 20080930
  4. SENNOSIDE [Concomitant]
     Route: 048
     Dates: start: 20080930

REACTIONS (3)
  - CHOKING SENSATION [None]
  - LARYNGEAL OEDEMA [None]
  - RASH [None]
